FAERS Safety Report 10511791 (Version 6)
Quarter: 2014Q4

REPORT INFORMATION
  Report Type: Spontaneous
  Country: GB (occurrence: GB)
  Receive Date: 20141010
  Receipt Date: 20141128
  Transmission Date: 20150528
  Serious: Yes (Death, Life-Threatening, Hospitalization)
  Sender: FDA-Public Use
  Company Number: PHFR2014GB006791

PATIENT
  Age: 36 Year
  Sex: Female
  Weight: 123 kg

DRUGS (8)
  1. IMIPRAMINE [Concomitant]
     Active Substance: IMIPRAMINE
     Indication: DEPRESSION
  2. IMIPRAMINE [Concomitant]
     Active Substance: IMIPRAMINE
     Indication: VOMITING
     Dosage: 150 MG, QD
     Route: 048
     Dates: start: 201407, end: 20141010
  3. SERETIDE [Concomitant]
     Active Substance: FLUTICASONE FUROATE\SALMETEROL XINAFOATE
     Indication: ASTHMA
     Dosage: 500 UG, QD
     Route: 055
     Dates: start: 201406, end: 20141010
  4. LANSOPRAZOLE. [Concomitant]
     Active Substance: LANSOPRAZOLE
     Indication: REFLUX GASTRITIS
     Dosage: 30 MG, QD
     Route: 048
     Dates: start: 201305
  5. CLOZARIL [Suspect]
     Active Substance: CLOZAPINE
     Indication: SCHIZOPHRENIA
     Dosage: UNK
     Route: 048
     Dates: start: 20140829, end: 20140902
  6. CLOZARIL [Suspect]
     Active Substance: CLOZAPINE
     Indication: NEUTROPENIA
     Dosage: UNK
     Route: 048
     Dates: start: 20140905, end: 20141002
  7. SALBUTAMOL [Concomitant]
     Active Substance: ALBUTEROL
     Indication: ASTHMA
     Dosage: 200 UG, QD
     Route: 055
     Dates: start: 1999
  8. TOPIRAMATE. [Concomitant]
     Active Substance: TOPIRAMATE
     Indication: AFFECTIVE DISORDER
     Dosage: 300 MG, QD
     Route: 048
     Dates: start: 201406, end: 20141010

REACTIONS (11)
  - White blood cell count decreased [Fatal]
  - Respiratory failure [Unknown]
  - Pneumocystis jirovecii pneumonia [Fatal]
  - Tonsillitis [Unknown]
  - No therapeutic response [Unknown]
  - Bone marrow failure [Fatal]
  - Multi-organ failure [Fatal]
  - Cardiac failure [Unknown]
  - Sedation [Unknown]
  - Neutropenia [Fatal]
  - Pyrexia [Unknown]

NARRATIVE: CASE EVENT DATE: 20140929
